FAERS Safety Report 25425463 (Version 6)
Quarter: 2025Q4

REPORT INFORMATION
  Report Type: Spontaneous
  Country: US (occurrence: US)
  Receive Date: 20250611
  Receipt Date: 20251010
  Transmission Date: 20260118
  Serious: No
  Sender: CALLIDITAS THERAPEUTICS AB
  Company Number: US-Calliditas-2025CAL01542

PATIENT
  Age: 81 Year
  Sex: Male

DRUGS (20)
  1. TARPEYO [Suspect]
     Active Substance: BUDESONIDE
     Indication: IgA nephropathy
     Route: 048
     Dates: start: 20250514
  2. ALLOPURINOL [Concomitant]
     Active Substance: ALLOPURINOL
  3. APPLE CIDER VINEGAR [MALUS SPP. VINEGAR EXTRACT] [Concomitant]
  4. ASTRAGALUS SPP. [Concomitant]
  5. ALLEGRA D-12 HOUR [Concomitant]
     Active Substance: FEXOFENADINE HYDROCHLORIDE\PSEUDOEPHEDRINE HYDROCHLORIDE
  6. ATORVASTATIN [Concomitant]
     Active Substance: ATORVASTATIN
  7. BACTRIM DS [Concomitant]
     Active Substance: SULFAMETHOXAZOLE\TRIMETHOPRIM
  8. CALCIUM [Concomitant]
     Active Substance: CALCIUM
  9. DESMOPRESSIN [Concomitant]
     Active Substance: DESMOPRESSIN
  10. FINASTERIDE [Concomitant]
     Active Substance: FINASTERIDE
  11. FLONASE ALLERGY RELIEF [Concomitant]
     Active Substance: FLUTICASONE PROPIONATE
  12. GABAPENTIN [Concomitant]
     Active Substance: GABAPENTIN
  13. HYDROCORTISONE [Concomitant]
     Active Substance: HYDROCORTISONE
  14. LACTOBACILLUS ACIDOPHILUS [Concomitant]
     Active Substance: LACTOBACILLUS ACIDOPHILUS
  15. LEVOTHYROXINE [Concomitant]
     Active Substance: LEVOTHYROXINE
  16. SILDENAFIL [Concomitant]
     Active Substance: SILDENAFIL
  17. TAMSULOSIN [Concomitant]
     Active Substance: TAMSULOSIN
  18. TESTOSTERONE [Concomitant]
     Active Substance: TESTOSTERONE
  19. VITAMIN B6 [Concomitant]
     Active Substance: PYRIDOXINE HYDROCHLORIDE
  20. ZOLPIDEM [Concomitant]
     Active Substance: ZOLPIDEM TARTRATE

REACTIONS (9)
  - Joint swelling [Not Recovered/Not Resolved]
  - Therapeutic response unexpected [Recovering/Resolving]
  - Asthenia [Recovering/Resolving]
  - Increased tendency to bruise [Not Recovered/Not Resolved]
  - Skin laceration [Not Recovered/Not Resolved]
  - Nail disorder [Not Recovered/Not Resolved]
  - Wound [Not Recovered/Not Resolved]
  - Alopecia [Not Recovered/Not Resolved]
  - Haemorrhagic diathesis [Not Recovered/Not Resolved]

NARRATIVE: CASE EVENT DATE: 20250301
